FAERS Safety Report 4963484-6 (Version None)
Quarter: 2006Q1

REPORT INFORMATION
  Report Type: 
  Country: None (occurrence: None)
  Receive Date: 20060329
  Receipt Date: 20060213
  Transmission Date: 20060701
  Serious: Yes (Hospitalization)
  Sender: FDA-Public Use
  Company Number: 602307

PATIENT
  Age: 82 Year
  Sex: Female

DRUGS (3)
  1. POLYGAM S/D [Suspect]
  2. SOLU-CORTEF [Concomitant]
  3. TYLENOL (CAPLET) [Concomitant]

REACTIONS (7)
  - BLOOD ALBUMIN INCREASED [None]
  - BLOOD SODIUM INCREASED [None]
  - BLOOD UREA INCREASED [None]
  - GLOBULINS INCREASED [None]
  - HAEMATOCRIT INCREASED [None]
  - ISCHAEMIC STROKE [None]
  - PLATELET COUNT INCREASED [None]
